FAERS Safety Report 18575234 (Version 1)
Quarter: 2020Q4

REPORT INFORMATION
  Report Type: Spontaneous
  Country: US (occurrence: US)
  Receive Date: 20201202
  Receipt Date: 20201202
  Transmission Date: 20210114
  Serious: No
  Sender: FDA-Public Use
  Company Number: None

PATIENT
  Age: 61 Year
  Sex: Male

DRUGS (1)
  1. METFORMIN (METFORMIN HCL 500MG TAB,SA) [Suspect]
     Active Substance: METFORMIN HYDROCHLORIDE
     Indication: DIABETES MELLITUS
     Route: 048
     Dates: start: 20191118, end: 20200724

REACTIONS (2)
  - Photosensitivity reaction [None]
  - Diplopia [None]

NARRATIVE: CASE EVENT DATE: 20200724
